FAERS Safety Report 10235172 (Version 1)
Quarter: 2014Q2

REPORT INFORMATION
  Report Type: Spontaneous
  Country: US (occurrence: None)
  Receive Date: 20140611
  Receipt Date: 20140611
  Transmission Date: 20141212
  Serious: Yes (Hospitalization, Other)
  Sender: FDA-Public Use
  Company Number: 2014-US-006945

PATIENT
  Age: 32 Year
  Sex: Male
  Weight: 90.7 kg

DRUGS (15)
  1. XYREM [Suspect]
     Indication: NARCOLEPSY
     Route: 048
     Dates: start: 200708, end: 2007
  2. DILAUDID [Suspect]
     Indication: PRODUCT USED FOR UNKNOWN INDICATION
     Dosage: UNK, UNKNOWN
  3. LEVOXYL (LEVOTHYROXINE SODIUM) [Concomitant]
  4. COREG (CARVEDILOL) [Concomitant]
  5. CRESTOR (ROSUVASTATIN CALCIUM) [Concomitant]
  6. TOPAMAX (TOPIRAMATE) [Concomitant]
  7. LYRICA (PREGABALIN) [Concomitant]
  8. REQUIP (ROPINIROLE HYDROCHLORIDE) [Concomitant]
  9. EFFEXOR XR (VENLAFAXINE HYDROCHLORIDE) [Concomitant]
  10. GABAPENTIN (GABAPENTIN) [Concomitant]
  11. BUSPAR (BUSPIRONE HYDROCHLORIDE) [Concomitant]
  12. RITALIN [Concomitant]
  13. NUVIGIL (ARMODAFINIL) [Concomitant]
  14. ALLERGY SHOTS (ALLERGY MEDICATION) [Concomitant]
  15. HYDROCODONE W/ACETAMINOPHEN (HYDROCODONE BITARTRATE, PARACETAMOL) [Concomitant]

REACTIONS (7)
  - Spinal fusion surgery [None]
  - Intervertebral disc degeneration [None]
  - Gastric banding [None]
  - Weight decreased [None]
  - Drug hypersensitivity [None]
  - Rash [None]
  - Pruritus [None]
